FAERS Safety Report 6583056-X (Version None)
Quarter: 2010Q1

REPORT INFORMATION
  Report Type: 
  Country: None (occurrence: None)
  Receive Date: 20100216
  Receipt Date: 20100209
  Transmission Date: 20100710
  Serious: Yes (Life-Threatening, Hospitalization)
  Sender: FDA-Public Use
  Company Number: FR-ROCHE-676261

PATIENT
  Sex: Female
  Weight: 76 kg

DRUGS (2)
  1. XENICAL [Suspect]
     Indication: OBESITY
     Route: 065
     Dates: start: 20070601, end: 20081201
  2. TAREG [Concomitant]

REACTIONS (1)
  - LIPOSARCOMA [None]
